FAERS Safety Report 10628506 (Version 1)
Quarter: 2014Q4

REPORT INFORMATION
  Report Type: Spontaneous
  Country: US (occurrence: US)
  Receive Date: 20141205
  Receipt Date: 20141205
  Transmission Date: 20150529
  Serious: No
  Sender: FDA-Public Use
  Company Number: US-BRISTOL-MYERS SQUIBB COMPANY-19797851

PATIENT
  Age: 5 Decade
  Sex: Female

DRUGS (1)
  1. KOMBIGLYZE XR [Suspect]
     Active Substance: METFORMIN HYDROCHLORIDE\SAXAGLIPTIN HYDROCHLORIDE
     Dosage: 1DF: 2 TABS OF KOMBIGLYZE XR 2.5 MG/1000 MG

REACTIONS (2)
  - Abdominal distension [Unknown]
  - Gastrointestinal disorder [Unknown]
